FAERS Safety Report 25287468 (Version 1)
Quarter: 2025Q2

REPORT INFORMATION
  Report Type: Spontaneous
  Country: IN (occurrence: IN)
  Receive Date: 20250509
  Receipt Date: 20250509
  Transmission Date: 20250717
  Serious: Yes (Other)
  Sender: MYLAN
  Company Number: IN-MYLANLABS-2025M1039115

PATIENT
  Age: 40 Year
  Sex: Male

DRUGS (4)
  1. GEMCITABINE [Suspect]
     Active Substance: GEMCITABINE
     Indication: Small intestine carcinoma
  2. GEMCITABINE [Suspect]
     Active Substance: GEMCITABINE
     Route: 065
  3. GEMCITABINE [Suspect]
     Active Substance: GEMCITABINE
     Route: 065
  4. GEMCITABINE [Suspect]
     Active Substance: GEMCITABINE

REACTIONS (4)
  - Thrombotic microangiopathy [Recovering/Resolving]
  - Posterior reversible encephalopathy syndrome [Recovering/Resolving]
  - Nephrotic syndrome [Recovering/Resolving]
  - Off label use [Unknown]
